FAERS Safety Report 9051032 (Version 1)
Quarter: 2013Q1

REPORT INFORMATION
  Report Type: Report from Study
  Country: FR (occurrence: FR)
  Receive Date: 20130205
  Receipt Date: 20130205
  Transmission Date: 20140127
  Serious: Yes (Life-Threatening)
  Sender: FDA-Public Use
  Company Number: FR-MPIJNJ-2013-00951

PATIENT
  Sex: 0

DRUGS (12)
  1. VELCADE [Suspect]
     Indication: PLASMA CELL MYELOMA
     Dosage: 2.2 MG, UNK
     Route: 065
     Dates: start: 20120622, end: 20120806
  2. REVLIMID [Suspect]
     Indication: PLASMA CELL MYELOMA
     Dosage: 25 MG, UNK
     Route: 065
     Dates: start: 20120622, end: 20120809
  3. DEXAMETHASONE [Suspect]
     Indication: PLASMA CELL MYELOMA
     Dosage: 20 MG, UNK
     Route: 065
     Dates: start: 20120622, end: 20120807
  4. CORDARONE [Concomitant]
     Indication: ARRHYTHMIA
     Dosage: UNK
     Route: 048
     Dates: start: 1982
  5. DETENSIEL                          /00802601/ [Concomitant]
     Indication: ARRHYTHMIA
     Dosage: UNK
     Route: 048
     Dates: start: 2011
  6. PREVISCAN                          /00261401/ [Concomitant]
     Indication: PROPHYLAXIS
     Dosage: UNK
     Route: 048
     Dates: start: 201010
  7. TAHOR [Concomitant]
     Indication: HYPERCHOLESTEROLAEMIA
     Dosage: UNK
     Route: 048
     Dates: start: 2007
  8. INEXIUM /01479302/ [Concomitant]
     Indication: PROPHYLAXIS
     Dosage: UNK
     Route: 048
     Dates: start: 201205, end: 20120810
  9. ZELITREX                           /01269701/ [Concomitant]
     Indication: PROPHYLAXIS
     Dosage: UNK
     Route: 048
     Dates: start: 20120622, end: 20120810
  10. AMOXICILLINE                       /00249602/ [Concomitant]
     Indication: PROPHYLAXIS
     Dosage: UNK
     Route: 048
     Dates: start: 20120622, end: 20120810
  11. NEORECORMON [Concomitant]
     Indication: ANAEMIA
     Dosage: UNK
     Route: 058
     Dates: start: 20120622, end: 20120810
  12. MOVICOL                            /01053601/ [Concomitant]
     Indication: CONSTIPATION
     Dosage: UNK
     Route: 048
     Dates: start: 20120706, end: 20120810

REACTIONS (1)
  - Vomiting [Recovered/Resolved]
